FAERS Safety Report 6288701-4 (Version None)
Quarter: 2009Q3

REPORT INFORMATION
  Report Type: 
  Country: None (occurrence: None)
  Receive Date: 20090729
  Receipt Date: 20090717
  Transmission Date: 20100115
  Serious: Yes (Other)
  Sender: FDA-Public Use
  Company Number: US-JNJCH-2009019560

PATIENT
  Age: 43 Year
  Sex: Female
  Weight: 61.2 kg

DRUGS (1)
  1. ROGAINE [Suspect]
     Indication: ALOPECIA
     Dosage: TEXT:^REGULAR AMOUNT^ ONE TIME PER DAY
     Route: 061
     Dates: start: 20090701, end: 20090715

REACTIONS (5)
  - ALOPECIA [None]
  - APPLICATION SITE BLEEDING [None]
  - APPLICATION SITE BURN [None]
  - APPLICATION SITE PUSTULES [None]
  - APPLICATION SITE ULCER [None]
